FAERS Safety Report 24574359 (Version 3)
Quarter: 2025Q3

REPORT INFORMATION
  Report Type: Report from Study
  Country: US (occurrence: US)
  Receive Date: 20241104
  Receipt Date: 20250803
  Transmission Date: 20251020
  Serious: Yes (Other)
  Sender: ALEXION PHARMACEUTICALS
  Company Number: US-AstraZeneca-CH-00731024A

PATIENT
  Age: 73 Year
  Sex: Female
  Weight: 86.636 kg

DRUGS (14)
  1. TEZEPELUMAB [Suspect]
     Active Substance: TEZEPELUMAB
     Indication: Asthma
     Dosage: 210 MILLIGRAM, Q4W
  2. ROSUVASTATIN CALCIUM [Concomitant]
     Active Substance: ROSUVASTATIN CALCIUM
  3. AZELASTINE. [Concomitant]
     Active Substance: AZELASTINE HYDROCHLORIDE
  4. CIPROFLOXACIN [Concomitant]
     Active Substance: CIPROFLOXACIN
  5. COREG [Concomitant]
     Active Substance: CARVEDILOL
  6. VITAMINS [Concomitant]
     Active Substance: VITAMINS
  7. IPRATROPIUM [Concomitant]
     Active Substance: IPRATROPIUM
  8. LASIX [Concomitant]
     Active Substance: FUROSEMIDE
  9. MONTELUKAST SODIUM [Concomitant]
     Active Substance: MONTELUKAST SODIUM
  10. NIFEDIPINE [Concomitant]
     Active Substance: NIFEDIPINE
  11. TELMISARTAN [Concomitant]
     Active Substance: TELMISARTAN
  12. TRELEGY ELLIPTA [Concomitant]
     Active Substance: FLUTICASONE FUROATE\UMECLIDINIUM BROMIDE\VILANTEROL TRIFENATATE
  13. THERATEARS [Concomitant]
     Active Substance: CARBOXYMETHYLCELLULOSE SODIUM
  14. TIZANIDINE [Concomitant]
     Active Substance: TIZANIDINE

REACTIONS (20)
  - Chronic kidney disease [Unknown]
  - Immunodeficiency [Unknown]
  - Rhinitis [Unknown]
  - Epistaxis [Unknown]
  - Productive cough [Unknown]
  - Chills [Unknown]
  - Nasal mucosal disorder [Unknown]
  - Asthma [Unknown]
  - Arteriosclerosis [Unknown]
  - Breast hypoplasia [Unknown]
  - Diverticulum intestinal [Unknown]
  - Emphysema [Unknown]
  - Hypertension [Unknown]
  - Hyperlipidaemia [Unknown]
  - Intervertebral disc degeneration [Unknown]
  - Large intestine polyp [Unknown]
  - Obesity [Unknown]
  - Osteoporosis [Unknown]
  - Glucose tolerance impaired [Unknown]
  - Urticaria [Unknown]
